FAERS Safety Report 21767410 (Version 1)
Quarter: 2022Q4

REPORT INFORMATION
  Report Type: Spontaneous
  Country: US (occurrence: US)
  Receive Date: 20221222
  Receipt Date: 20221222
  Transmission Date: 20230113
  Serious: No
  Sender: FDA-Public Use
  Company Number: US-SANOFI-01412926

PATIENT
  Age: 29 Year
  Sex: Male

DRUGS (1)
  1. LANTUS [Suspect]
     Active Substance: INSULIN GLARGINE
     Dosage: 35 UNITS AND 36 UNITS QD; DRUG TREATMENT DURATION:2 MONTHS
     Dates: start: 2022

REACTIONS (3)
  - Fatigue [Unknown]
  - Blood glucose increased [Unknown]
  - Injection site rash [Unknown]
